FAERS Safety Report 5915745-1 (Version None)
Quarter: 2008Q4

REPORT INFORMATION
  Report Type: 
  Country: None (occurrence: None)
  Receive Date: 20081010
  Receipt Date: 20081006
  Transmission Date: 20090506
  Serious: No
  Sender: FDA-Public Use
  Company Number: US-B.I. PHARMACEUTICALS,INC./RIDGEFIELD-2008-BP-15437BP

PATIENT
  Age: 88 Year
  Sex: Female

DRUGS (4)
  1. SPIRIVA [Suspect]
     Indication: ASTHMA
     Dosage: 18MCG
     Route: 055
     Dates: start: 20080901
  2. LUMIGAN [Concomitant]
     Indication: GLAUCOMA
     Route: 031
  3. AZOPT [Concomitant]
     Indication: GLAUCOMA
     Route: 031
  4. QUINAPRIL [Concomitant]
     Indication: HYPERTENSION
     Route: 048

REACTIONS (1)
  - INTRAOCULAR PRESSURE INCREASED [None]
